FAERS Safety Report 4327856-5 (Version None)
Quarter: 2004Q1

REPORT INFORMATION
  Report Type: 
  Country: None (occurrence: None)
  Receive Date: 20040325
  Receipt Date: 20040312
  Transmission Date: 20041129
  Serious: Yes (Hospitalization)
  Sender: FDA-Public Use
  Company Number: SE-JNJFOC-20040302939

PATIENT
  Age: 29 Year
  Sex: Male

DRUGS (4)
  1. NOBLIGAN          (TRAMADOL HYDROCHLORIDE) [Suspect]
     Indication: SYNOVITIS
     Dosage: 500 MG
     Dates: start: 20020501, end: 20030817
  2. XANOR (ALPRAZOLAM) UNKNOWN [Suspect]
     Indication: ANXIETY
     Dosage: 20 MG, 1 IN 1 DAY
     Dates: start: 20020501
  3. VENLAFAXINE (VENLAFAXINE) [Concomitant]
  4. MIRTAZAPINE (MIRAZAPINE) [Concomitant]

REACTIONS (6)
  - DISCOMFORT [None]
  - DRUG INTERACTION [None]
  - FORMICATION [None]
  - IRRITABILITY [None]
  - PERSONALITY DISORDER [None]
  - SUSPICIOUSNESS [None]
